FAERS Safety Report 21858888 (Version 1)
Quarter: 2023Q1

REPORT INFORMATION
  Report Type: Spontaneous
  Country: US (occurrence: US)
  Receive Date: 20230113
  Receipt Date: 20230113
  Transmission Date: 20230418
  Serious: No
  Sender: FDA-Public Use
  Company Number: US-BRISTOL-MYERS SQUIBB COMPANY-2023-006148

PATIENT
  Age: 83 Year
  Sex: Female

DRUGS (1)
  1. ELIQUIS [Suspect]
     Active Substance: APIXABAN
     Indication: Product used for unknown indication
     Dosage: DOSE : 5 MG ;     FREQ : ONE TABLET TWICE DAILY
     Route: 048
     Dates: end: 20230102

REACTIONS (3)
  - Rash [Recovering/Resolving]
  - Pruritus [Unknown]
  - Skin discolouration [Unknown]

NARRATIVE: CASE EVENT DATE: 20221001
